FAERS Safety Report 21542659 (Version 2)
Quarter: 2022Q4

REPORT INFORMATION
  Report Type: Report from Study
  Country: US (occurrence: US)
  Receive Date: 20221102
  Receipt Date: 20221110
  Transmission Date: 20230113
  Serious: Yes (Other)
  Sender: FDA-Public Use
  Company Number: US-ABBVIE-4185676

PATIENT
  Age: 61 Year
  Sex: Female

DRUGS (1)
  1. HUMIRA [Suspect]
     Active Substance: ADALIMUMAB
     Indication: Rheumatoid arthritis
     Dosage: CF?STRENGTH: 40 MILLIGRAM?START DATE TEXT: 4 OR 5 YEARS
     Route: 058
     Dates: start: 2017, end: 202209

REACTIONS (5)
  - Surgery [Recovering/Resolving]
  - Joint swelling [Not Recovered/Not Resolved]
  - Unevaluable event [Recovering/Resolving]
  - Pain [Recovering/Resolving]
  - Arthralgia [Not Recovered/Not Resolved]

NARRATIVE: CASE EVENT DATE: 20220821
